FAERS Safety Report 15579536 (Version 1)
Quarter: 2018Q4

REPORT INFORMATION
  Report Type: Spontaneous
  Country: US (occurrence: US)
  Receive Date: 20181102
  Receipt Date: 20181102
  Transmission Date: 20190205
  Serious: Yes (Other)
  Sender: FDA-Public Use
  Company Number: US-009507513-1810USA010550

PATIENT
  Sex: Female
  Weight: 51.7 kg

DRUGS (3)
  1. NEXPLANON [Suspect]
     Active Substance: ETONOGESTREL
     Indication: CONTRACEPTION
     Route: 065
  2. IMPLANON [Suspect]
     Active Substance: ETONOGESTREL
     Dosage: 1 DOSAGE FORM
     Route: 059
     Dates: end: 20110920
  3. IMPLANON [Suspect]
     Active Substance: ETONOGESTREL
     Indication: CONTRACEPTION
     Dosage: 1 DOSAGE FORM
     Route: 059
     Dates: start: 20110920

REACTIONS (9)
  - Device dislocation [Not Recovered/Not Resolved]
  - Complication associated with device [Unknown]
  - Vulvovaginal candidiasis [Unknown]
  - Dysmenorrhoea [Unknown]
  - Implant site pain [Unknown]
  - Complication associated with device [Unknown]
  - Incorrect product administration duration [Unknown]
  - Vaginal discharge [Unknown]
  - Vaginal discharge [Not Recovered/Not Resolved]

NARRATIVE: CASE EVENT DATE: 2011
